FAERS Safety Report 8610674-7 (Version None)
Quarter: 2012Q3

REPORT INFORMATION
  Report Type: 
  Country: None (occurrence: None)
  Receive Date: 20120822
  Receipt Date: 20120815
  Transmission Date: 20120928
  Serious: No
  Sender: FDA-Public Use
  Company Number: US-BAYER-2012-084752

PATIENT
  Age: 51 Year
  Sex: Female
  Weight: 59 kg

DRUGS (4)
  1. ALEVE (CAPLET) [Suspect]
     Indication: HEADACHE
     Dosage: 3 DF, BID
     Route: 048
  2. NEXIUM [Concomitant]
  3. TRIGLYCERIDES [Concomitant]
  4. RAZAPINE [Concomitant]

REACTIONS (1)
  - HEADACHE [None]
